FAERS Safety Report 7112496-5 (Version None)
Quarter: 2010Q4

REPORT INFORMATION
  Report Type: 
  Country: None (occurrence: None)
  Receive Date: 20101119
  Receipt Date: 20101103
  Transmission Date: 20110411
  Serious: Yes (Hospitalization)
  Sender: FDA-Public Use
  Company Number: US-BAYER-201027984NA

PATIENT
  Age: 28 Year
  Sex: Female
  Weight: 118 kg

DRUGS (5)
  1. YASMIN [Suspect]
     Indication: PRODUCT USED FOR UNKNOWN INDICATION
     Route: 048
     Dates: start: 20071101
  2. YAZ [Suspect]
     Indication: PREMENSTRUAL SYNDROME
     Route: 048
     Dates: start: 20071101, end: 20080701
  3. ALBUTEROL [Concomitant]
     Indication: ASTHMA
     Dosage: 0.083% 30ML 3 TIMES, 2 PUFFS PER DAY AS NEEDED
     Route: 055
     Dates: start: 20000101
  4. TYLENOL (CAPLET) [Concomitant]
     Indication: HEADACHE
     Route: 048
  5. SEASONIQUE [Concomitant]

REACTIONS (6)
  - CHEST DISCOMFORT [None]
  - DEEP VEIN THROMBOSIS [None]
  - DYSPNOEA [None]
  - OEDEMA PERIPHERAL [None]
  - PAIN IN EXTREMITY [None]
  - PULMONARY EMBOLISM [None]
